FAERS Safety Report 5897797-0 (Version None)
Quarter: 2008Q3

REPORT INFORMATION
  Report Type: 
  Country: None (occurrence: None)
  Receive Date: 20080924
  Receipt Date: 20080924
  Transmission Date: 20090109
  Serious: Yes (Hospitalization)
  Sender: FDA-Public Use
  Company Number: None

PATIENT
  Age: 47 Year
  Sex: Female
  Weight: 85.7298 kg

DRUGS (3)
  1. GEMZAR [Suspect]
     Indication: SARCOMA
     Dosage: GEMZAR DAYS 1 AND 8 IV DRIP
     Route: 041
     Dates: start: 20080618, end: 20080827
  2. TAXOTERE [Suspect]
     Indication: SARCOMA
     Dosage: TAXOTERE DAY 8 IV DRIP
     Route: 041
     Dates: start: 20080618, end: 20080827
  3. GEMZAR [Suspect]

REACTIONS (2)
  - DEEP VEIN THROMBOSIS [None]
  - OEDEMA PERIPHERAL [None]
